FAERS Safety Report 6451184-5 (Version None)
Quarter: 2009Q4

REPORT INFORMATION
  Report Type: 
  Country: None (occurrence: None)
  Receive Date: 20091123
  Receipt Date: 20090929
  Transmission Date: 20100525
  Serious: Yes (Hospitalization)
  Sender: FDA-Public Use
  Company Number: US-AMGEN-QUU366778

PATIENT
  Sex: Male

DRUGS (1)
  1. ENBREL [Suspect]
     Indication: ANKYLOSING SPONDYLITIS
     Route: 058
     Dates: start: 20050801

REACTIONS (5)
  - DEPRESSION [None]
  - NASOPHARYNGITIS [None]
  - SINUSITIS [None]
  - SOMNOLENCE [None]
  - WEIGHT DECREASED [None]
